FAERS Safety Report 21140547 (Version 1)
Quarter: 2022Q3

REPORT INFORMATION
  Report Type: Spontaneous
  Country: IT (occurrence: IT)
  Receive Date: 20220728
  Receipt Date: 20220728
  Transmission Date: 20221026
  Serious: Yes (Hospitalization)
  Sender: FDA-Public Use
  Company Number: None

PATIENT
  Age: 60 Year
  Sex: Male

DRUGS (4)
  1. QUETIAPINE [Interacting]
     Active Substance: QUETIAPINE
     Indication: Psychotic disorder
     Dosage: STRENGTH: 25 MG
     Dates: start: 20210930
  2. CIPROFLOXACIN [Interacting]
     Active Substance: CIPROFLOXACIN
     Indication: Diverticulectomy
     Dosage: STRENGTH: 2 MG/ML
     Dates: start: 20211012, end: 20211018
  3. ASACOL [Concomitant]
     Active Substance: MESALAMINE
     Indication: Colitis
     Dosage: STRENGTH:800 MG
     Dates: start: 20211009
  4. FLAGYL [Concomitant]
     Active Substance: METRONIDAZOLE\METRONIDAZOLE HYDROCHLORIDE
     Indication: Helicobacter infection
     Dosage: STRENGTH: 250 MG
     Dates: start: 20211002

REACTIONS (3)
  - Long QT syndrome [Recovered/Resolved]
  - Sinus arrhythmia [Recovered/Resolved]
  - Drug interaction [Unknown]

NARRATIVE: CASE EVENT DATE: 20211018
